FAERS Safety Report 9904195 (Version 1)
Quarter: 2014Q1

REPORT INFORMATION
  Report Type: Report from Study
  Country: US (occurrence: US)
  Receive Date: 20140218
  Receipt Date: 20140218
  Transmission Date: 20141002
  Serious: Yes (Other)
  Sender: FDA-Public Use
  Company Number: US-ROCHE-1331380

PATIENT
  Sex: Male

DRUGS (14)
  1. LUCENTIS [Suspect]
     Indication: AGE-RELATED MACULAR DEGENERATION
     Route: 050
     Dates: start: 20110802
  2. LUCENTIS [Suspect]
     Indication: RETINAL NEOVASCULARISATION
  3. AVASTIN [Suspect]
     Indication: PRODUCT USED FOR UNKNOWN INDICATION
     Route: 050
  4. SIMVASTATIN [Concomitant]
     Route: 065
  5. ASPIRIN [Concomitant]
     Route: 065
  6. TROPICAMIDE [Concomitant]
     Route: 065
  7. PHENYLEPHRINE [Concomitant]
     Route: 065
  8. FISH OIL [Concomitant]
     Route: 065
  9. HYDROCHLOROTHIAZIDE [Concomitant]
     Route: 065
  10. TAMSULOSIN [Concomitant]
     Route: 065
  11. PROPARACAINE [Concomitant]
  12. LIDOCAINE [Concomitant]
     Route: 065
  13. EPINEPHRINE [Concomitant]
  14. BETADINE [Concomitant]
     Route: 065

REACTIONS (11)
  - Retinal oedema [Unknown]
  - Pupillary disorder [Unknown]
  - Retinal scar [Unknown]
  - Visual impairment [Unknown]
  - Vitreous floaters [Unknown]
  - Subretinal fibrosis [Unknown]
  - Retinal disorder [Unknown]
  - Prostatomegaly [Unknown]
  - Retinal scar [Unknown]
  - Pupillary light reflex tests abnormal [Unknown]
  - Retinal exudates [Unknown]
